FAERS Safety Report 10277187 (Version 3)
Quarter: 2014Q3

REPORT INFORMATION
  Report Type: Spontaneous
  Country: IT (occurrence: IT)
  Receive Date: 20140703
  Receipt Date: 20140902
  Transmission Date: 20150326
  Serious: Yes (Hospitalization)
  Sender: FDA-Public Use
  Company Number: IT-SA-2014SA084181

PATIENT
  Age: 70 Year
  Sex: Female

DRUGS (9)
  1. LANTUS [Suspect]
     Active Substance: INSULIN GLARGINE
     Indication: DIABETES MELLITUS
     Dosage: DOSE:46 UNIT(S)
     Route: 058
     Dates: start: 20101007, end: 20140112
  2. LASIX [Concomitant]
     Active Substance: FUROSEMIDE
     Dosage: STRENGTH: 25 MG
     Route: 048
  3. COUMADIN [Concomitant]
     Active Substance: WARFARIN SODIUM
     Dosage: STRENGTH: 5 MG
     Route: 048
  4. NOVORAPID [Suspect]
     Active Substance: INSULIN ASPART
     Indication: DIABETES MELLITUS
     Dosage: STRENGTH: 100 U/ML DOSE:64 UNIT(S)
     Route: 058
     Dates: start: 20101007, end: 20140623
  5. LORTAAN [Concomitant]
     Active Substance: LOSARTAN POTASSIUM
     Dosage: STRENGTH: 100 MG
     Route: 048
  6. GLUCOPHAGE [Suspect]
     Active Substance: METFORMIN HYDROCHLORIDE
     Indication: DIABETES MELLITUS
     Route: 048
     Dates: start: 20101007, end: 20140623
  7. SINVACOR [Concomitant]
     Active Substance: SIMVASTATIN
     Dosage: STRENGTH: 40 MG
     Route: 048
  8. LANOXIN [Concomitant]
     Active Substance: DIGOXIN
     Dosage: STRENGTH: 0.0625 MG
     Route: 048
  9. AMIODAR [Concomitant]
     Active Substance: AMIODARONE
     Dosage: STRENGTH: 200 MG
     Route: 048

REACTIONS (2)
  - Malaise [Recovered/Resolved]
  - Hypoglycaemia [Recovered/Resolved]

NARRATIVE: CASE EVENT DATE: 20131230
